FAERS Safety Report 16426287 (Version 1)
Quarter: 2019Q2

REPORT INFORMATION
  Report Type: Spontaneous
  Country: CN (occurrence: CN)
  Receive Date: 20190613
  Receipt Date: 20190613
  Transmission Date: 20190711
  Serious: Yes (Other)
  Sender: FDA-Public Use
  Company Number: CN-AMNEAL PHARMACEUTICALS-2019AMN00684

PATIENT
  Age: 77 Year
  Sex: Male
  Weight: 60 kg

DRUGS (17)
  1. TIGECYCLINE. [Suspect]
     Active Substance: TIGECYCLINE
     Indication: RESPIRATORY TRACT INFECTION
     Dosage: 50 MG, 2X/DAY EVERY 12 HOURS
  2. CLOPIDOGREL [Concomitant]
     Active Substance: CLOPIDOGREL BISULFATE
     Indication: PRODUCT USED FOR UNKNOWN INDICATION
     Dosage: DAY 1 TO DAY 28
  3. LEVAMLODIPINE [Concomitant]
     Active Substance: LEVAMLODIPINE
     Indication: PRODUCT USED FOR UNKNOWN INDICATION
     Dosage: DAY 1 TO DAY 18
  4. ALPROSTADIL. [Concomitant]
     Active Substance: ALPROSTADIL
     Indication: PRODUCT USED FOR UNKNOWN INDICATION
     Dosage: DAY 1 TO DAY 18
  5. FERROUS SULFATE. [Concomitant]
     Active Substance: FERROUS SULFATE
     Indication: PRODUCT USED FOR UNKNOWN INDICATION
     Dosage: DAY 1 TO DAY 18
  6. MINOCYCLINE [Concomitant]
     Active Substance: MINOCYCLINE\MINOCYCLINE HYDROCHLORIDE
     Indication: RESPIRATORY TRACT INFECTION
     Dosage: 400 MG, 2X/DAY, EVERY 12 HOURS
     Route: 048
  7. INSULIN [Concomitant]
     Active Substance: INSULIN NOS
     Indication: PRODUCT USED FOR UNKNOWN INDICATION
     Dosage: DAY 1 TO DAY 28
  8. TIGECYCLINE. [Suspect]
     Active Substance: TIGECYCLINE
     Indication: ACINETOBACTER INFECTION
     Dosage: DAY 16, LOADING DOSE OF 100 MG
     Route: 042
  9. FOLIC ACID. [Concomitant]
     Active Substance: FOLIC ACID
     Indication: PRODUCT USED FOR UNKNOWN INDICATION
     Dosage: DAY 1 TO DAY 18
  10. AMIKACIN. [Concomitant]
     Active Substance: AMIKACIN
     Indication: RESPIRATORY TRACT INFECTION
     Dosage: 200 MG DAILY
     Route: 042
  11. LEFT CARNITINE [Concomitant]
     Indication: PRODUCT USED FOR UNKNOWN INDICATION
     Dosage: DAY1 TO DAY 26
  12. AMBROXOL [Concomitant]
     Active Substance: AMBROXOL
     Indication: PRODUCT USED FOR UNKNOWN INDICATION
     Dosage: DAY 1 TO DAY 28
  13. AMINOPHYLLINE. [Concomitant]
     Active Substance: AMINOPHYLLINE
     Indication: PRODUCT USED FOR UNKNOWN INDICATION
     Dosage: DAY 3 TO DAY 26
  14. TRIMETAZIDINE [Concomitant]
     Active Substance: TRIMETAZIDINE
     Indication: PRODUCT USED FOR UNKNOWN INDICATION
     Dosage: DAY 3 TO DAY 28
  15. MOXIFLOXACIN. [Concomitant]
     Active Substance: MOXIFLOXACIN
     Indication: RESPIRATORY TRACT INFECTION
     Dosage: 400 MG DAILY, DAY 1 TO DAY 12
     Route: 042
  16. MEROPENEM. [Concomitant]
     Active Substance: MEROPENEM
     Indication: RESPIRATORY TRACT INFECTION
     Dosage: DAY 13 TO DAY 15, 500 MG, 3X/DAY, PER 8 HOURS
     Route: 042
  17. ISOSORBIDE MONONITRATE. [Concomitant]
     Active Substance: ISOSORBIDE MONONITRATE
     Indication: PRODUCT USED FOR UNKNOWN INDICATION
     Dosage: DAY 3 TO DAY 20

REACTIONS (1)
  - Delirium [Recovered/Resolved]
